FAERS Safety Report 6103997-7 (Version None)
Quarter: 2009Q1

REPORT INFORMATION
  Report Type: 
  Country: None (occurrence: None)
  Receive Date: 20090302
  Receipt Date: 20090220
  Transmission Date: 20090719
  Serious: Yes (Hospitalization)
  Sender: FDA-Public Use
  Company Number: 2009-190427-NL

PATIENT
  Age: 39 Year
  Sex: Female

DRUGS (8)
  1. MIRTAZAPINE [Suspect]
     Indication: ANXIETY
     Dosage: 0.5 DF/1 DF/1.5 DF
     Dates: start: 20081206, end: 20081201
  2. MIRTAZAPINE [Suspect]
     Indication: DEPRESSION
     Dosage: 0.5 DF/1 DF/1.5 DF
     Dates: start: 20081206, end: 20081201
  3. MIRTAZAPINE [Suspect]
     Indication: ANXIETY
     Dosage: 0.5 DF/1 DF/1.5 DF
     Dates: start: 20081202, end: 20081203
  4. MIRTAZAPINE [Suspect]
     Indication: DEPRESSION
     Dosage: 0.5 DF/1 DF/1.5 DF
     Dates: start: 20081202, end: 20081203
  5. MIRTAZAPINE [Suspect]
     Indication: ANXIETY
     Dosage: 0.5 DF/1 DF/1.5 DF
     Dates: start: 20081204, end: 20081205
  6. MIRTAZAPINE [Suspect]
     Indication: DEPRESSION
     Dosage: 0.5 DF/1 DF/1.5 DF
     Dates: start: 20081204, end: 20081205
  7. CLONAZEPAM [Concomitant]
  8. VALPROATE SODIUM [Concomitant]

REACTIONS (1)
  - ANGIOEDEMA [None]
